FAERS Safety Report 16197880 (Version 1)
Quarter: 2019Q2

REPORT INFORMATION
  Report Type: Spontaneous
  Country: US (occurrence: US)
  Receive Date: 20190311
  Receipt Date: 20190311
  Transmission Date: 20190711
  Serious: No
  Sender: FDA-Public Use
  Company Number: None

PATIENT
  Age: 24 Year
  Sex: Female

DRUGS (1)
  1. TALTZ [Suspect]
     Active Substance: IXEKIZUMAB
     Dosage: ?          OTHER FREQUENCY:UNKNOWN;?
     Route: 058
     Dates: start: 20180718

REACTIONS (4)
  - Upper respiratory tract infection [None]
  - Nasopharyngitis [None]
  - Therapy cessation [None]
  - Product prescribing error [None]

NARRATIVE: CASE EVENT DATE: 20190311
